FAERS Safety Report 6232862-X (Version None)
Quarter: 2009Q2

REPORT INFORMATION
  Report Type: 
  Country: None (occurrence: None)
  Receive Date: 20090617
  Receipt Date: 20090120
  Transmission Date: 20091009
  Serious: No
  Sender: FDA-Public Use
  Company Number: US-ASTRAZENECA-2009UW01619

PATIENT

DRUGS (1)
  1. FASLODEX [Suspect]
     Dosage: 125 MG
     Route: 030

REACTIONS (1)
  - HYPERCALCAEMIA [None]
